FAERS Safety Report 5202230-8 (Version None)
Quarter: 2007Q1

REPORT INFORMATION
  Report Type: 
  Country: None (occurrence: None)
  Receive Date: 20070109
  Receipt Date: 20061231
  Transmission Date: 20070707
  Serious: Yes (Hospitalization)
  Sender: FDA-Public Use
  Company Number: IL-NOVOPROD-259629

PATIENT
  Age: 3 Year
  Sex: Female

DRUGS (3)
  1. NOVOSEVEN [Suspect]
     Indication: CEREBRAL HAEMORRHAGE
     Dosage: 1.2 MG, QID
     Dates: start: 20061229
  2. HEXAKAPRON [Concomitant]
  3. PROTEIN C (COAGULATION INHIBITOR) [Concomitant]

REACTIONS (3)
  - HERNIA [None]
  - HYDROCEPHALUS [None]
  - ISCHAEMIC STROKE [None]
